FAERS Safety Report 5775555-5 (Version None)
Quarter: 2008Q2

REPORT INFORMATION
  Report Type: 
  Country: None (occurrence: None)
  Receive Date: 20080612
  Receipt Date: 20080528
  Transmission Date: 20081010
  Serious: Yes (Life-Threatening, Hospitalization)
  Sender: FDA-Public Use
  Company Number: S08-ESP-01966-01

PATIENT
  Age: 75 Year
  Sex: Male

DRUGS (6)
  1. CITALOPRAM HYDROBROMIDE [Suspect]
     Indication: DEPRESSION
     Dosage: 30 MG QD.PO
     Route: 048
     Dates: end: 20080409
  2. DICLOFENAC SODIUM [Suspect]
     Indication: OSTEOARTHRITIS
     Dosage: 100 MG QD;PO
     Route: 048
     Dates: start: 20040101, end: 20080409
  3. SINTROM [Suspect]
     Indication: ATRIAL FIBRILLATION
     Dates: end: 20080409
  4. IRBESARTAN [Concomitant]
  5. BENESTAN 9ALFUZOSIN HYDROCHLORIDE) [Concomitant]
  6. ISULATARD (INSULIN HUMAN INJECTION, ISOPHANE) [Concomitant]

REACTIONS (7)
  - DUODENAL ULCER [None]
  - DYSPNOEA [None]
  - HAEMATOCRIT DECREASED [None]
  - HAEMOGLOBIN DECREASED [None]
  - THROMBOSIS [None]
  - UNEVALUABLE EVENT [None]
  - UPPER GASTROINTESTINAL HAEMORRHAGE [None]
